FAERS Safety Report 15507405 (Version 1)
Quarter: 2018Q4

REPORT INFORMATION
  Report Type: Spontaneous
  Country: US (occurrence: US)
  Receive Date: 20181016
  Receipt Date: 20181016
  Transmission Date: 20190205
  Serious: No
  Sender: FDA-Public Use
  Company Number: US-PFIZER INC-2018421416

PATIENT
  Sex: Male

DRUGS (1)
  1. LYRICA [Suspect]
     Active Substance: PREGABALIN
     Indication: PAIN
     Dosage: 400 MG, DAILY, (TAKING 100 AND PRETTY MUCH ONE MORNING AND ONE AFTERNOON AND TWO IN EVENING SO 400)

REACTIONS (1)
  - Drug effect incomplete [Unknown]
